FAERS Safety Report 8778550 (Version 1)
Quarter: 2012Q4

REPORT INFORMATION
  Report Type: 
  Country: CA (occurrence: CA)
  Receive Date: 20120914
  Receipt Date: 20120914
  Transmission Date: 20130627
  Serious: Yes (Other)
  Sender: FDA-Public Use
  Company Number: CHPA2012CA016627

PATIENT
  Sex: Female

DRUGS (3)
  1. MAALOX ANTACID WITH ANTI-GAS REGULAR [Suspect]
     Dosage: 1/2 to 1 DF, AT NIGHT
     Route: 048
  2. SYNTHROID [Concomitant]
     Indication: THYROID DISORDER
     Dosage: Unk, Unk
  3. PREVACID [Concomitant]
     Dosage: Unk, Unk

REACTIONS (4)
  - Hernia [Not Recovered/Not Resolved]
  - Blood iron decreased [Not Recovered/Not Resolved]
  - Wrong technique in drug usage process [Unknown]
  - Underdose [Unknown]
